FAERS Safety Report 6817680-3 (Version None)
Quarter: 2010Q3

REPORT INFORMATION
  Report Type: 
  Country: None (occurrence: None)
  Receive Date: 20100706
  Receipt Date: 20100624
  Transmission Date: 20110219
  Serious: Yes (Other)
  Sender: FDA-Public Use
  Company Number: JP-PFIZER INC-2010079134

PATIENT
  Sex: Female

DRUGS (3)
  1. ALDACTONE [Suspect]
     Dosage: 25 MG, DAILY
     Route: 048
  2. LASIX [Concomitant]
     Dosage: 20MG, DAILY
     Route: 048
  3. WARFARIN [Concomitant]
     Dosage: 1.5MG, DAILY
     Route: 048

REACTIONS (1)
  - HAEMATURIA [None]
